FAERS Safety Report 26144950 (Version 1)
Quarter: 2025Q4

REPORT INFORMATION
  Report Type: Spontaneous
  Country: EU (occurrence: EU)
  Receive Date: 20251211
  Receipt Date: 20251211
  Transmission Date: 20260119
  Serious: Yes (Hospitalization, Other)
  Sender: SANOFI AVENTIS
  Company Number: EU-SANOFI-02738558

PATIENT
  Age: 75 Year
  Sex: Male

DRUGS (1)
  1. INSULIN GLARGINE\LIXISENATIDE [Suspect]
     Active Substance: INSULIN GLARGINE\LIXISENATIDE
     Dosage: UNK
     Dates: start: 202501, end: 202507

REACTIONS (5)
  - Liver abscess [Unknown]
  - Cholelithiasis [Unknown]
  - Abdominal discomfort [Unknown]
  - Abdominal abscess [Unknown]
  - Inflammation [Not Recovered/Not Resolved]

NARRATIVE: CASE EVENT DATE: 20250101
